FAERS Safety Report 16829502 (Version 1)
Quarter: 2019Q3

REPORT INFORMATION
  Report Type: Spontaneous
  Country: US (occurrence: US)
  Receive Date: 20190919
  Receipt Date: 20190919
  Transmission Date: 20191005
  Serious: No
  Sender: FDA-Public Use
  Company Number: US-AMERICAN REGENT INC-20191325

PATIENT
  Sex: Female

DRUGS (2)
  1. UNSPECIFIED STEROIDS [Concomitant]
     Active Substance: UNSPECIFIED INGREDIENT
     Indication: PRODUCT USED FOR UNKNOWN INDICATION
     Dosage: UNKNOWN PRE-INJECTAFER
     Route: 042
     Dates: start: 20190620, end: 20190620
  2. INJECTAFER [Suspect]
     Active Substance: FERRIC CARBOXYMALTOSE
     Indication: PRODUCT USED FOR UNKNOWN INDICATION
     Dosage: 200 MG (2 SMALL IV BAGS) 1 DAYS
     Route: 042
     Dates: start: 20190620, end: 20190620

REACTIONS (3)
  - Abdominal distension [Not Recovered/Not Resolved]
  - Hypersensitivity [Unknown]
  - Incorrect dosage administered [Unknown]

NARRATIVE: CASE EVENT DATE: 20190620
